FAERS Safety Report 4725195-1 (Version None)
Quarter: 2005Q3

REPORT INFORMATION
  Report Type: 
  Country: None (occurrence: None)
  Receive Date: 20050721
  Receipt Date: 20050610
  Transmission Date: 20060218
  Serious: No
  Sender: FDA-Public Use
  Company Number: 2005SP001342

PATIENT
  Age: 43 Year
  Sex: Female

DRUGS (3)
  1. LUNESTA [Suspect]
     Dosage: 3 MG;HS;ORAL
     Route: 048
     Dates: start: 20050101
  2. SYNTHROID [Concomitant]
  3. AVALIDE [Concomitant]

REACTIONS (2)
  - DYSGEUSIA [None]
  - VOMITING [None]
